FAERS Safety Report 21745629 (Version 4)
Quarter: 2023Q1

REPORT INFORMATION
  Report Type: Report from Study
  Country: PT (occurrence: None)
  Receive Date: 20221219
  Receipt Date: 20230315
  Transmission Date: 20230417
  Serious: Yes (Hospitalization)
  Sender: FDA-Public Use
  Company Number: PT-ROCHE-3242463

PATIENT
  Age: 57 Year
  Sex: Male
  Weight: 83 kg

DRUGS (13)
  1. ENTRECTINIB [Suspect]
     Active Substance: ENTRECTINIB
     Indication: Head and neck cancer metastatic
     Dosage: START DATE OF MOST RECENT DOSE OF STUDY DRUG PRIOR TO AE: 23-OCT-2022
     Route: 048
     Dates: start: 20220607
  2. AMLODIPINE\PERINDOPRIL [Concomitant]
     Active Substance: AMLODIPINE\PERINDOPRIL
     Indication: Hypertension
     Route: 048
     Dates: start: 20220615, end: 20221108
  3. NIMESULIDE [Concomitant]
     Active Substance: NIMESULIDE
     Indication: Pain
     Route: 048
     Dates: start: 20220604
  4. METOCLOPRAMIDE [Concomitant]
     Active Substance: METOCLOPRAMIDE
     Indication: Nausea
     Route: 048
     Dates: start: 20220608
  5. METOCLOPRAMIDE [Concomitant]
     Active Substance: METOCLOPRAMIDE
     Indication: Vomiting
  6. CICLOPIROX [Concomitant]
     Active Substance: CICLOPIROX
     Indication: Onychomycosis
     Dosage: 80 OTHER
     Route: 061
     Dates: start: 20220615, end: 20230111
  7. ROSUVASTATIN [Concomitant]
     Active Substance: ROSUVASTATIN
     Indication: Dyslipidaemia
     Route: 048
     Dates: start: 20220615
  8. SACUBITRIL\VALSARTAN [Concomitant]
     Active Substance: SACUBITRIL\VALSARTAN
     Indication: Ejection fraction decreased
     Route: 048
     Dates: start: 20221110
  9. DAPAGLIFLOZIN [Concomitant]
     Active Substance: DAPAGLIFLOZIN
     Indication: Ejection fraction decreased
     Route: 048
     Dates: start: 20221108
  10. BISOPROLOL [Concomitant]
     Active Substance: BISOPROLOL
     Indication: Ejection fraction decreased
     Route: 048
     Dates: start: 20221108, end: 20230130
  11. BISOPROLOL [Concomitant]
     Active Substance: BISOPROLOL
     Route: 048
     Dates: start: 20230131
  12. VIGANTOL [Concomitant]
     Indication: Dysuria
     Dosage: 10 OTHER
     Route: 048
     Dates: start: 20221024, end: 20221121
  13. VIGANTOL [Concomitant]
     Dosage: 15 OTHER
     Route: 048
     Dates: start: 20221121

REACTIONS (1)
  - Ischaemic stroke [Not Recovered/Not Resolved]

NARRATIVE: CASE EVENT DATE: 20221204
